FAERS Safety Report 9532816 (Version 2)
Quarter: 2013Q3

REPORT INFORMATION
  Report Type: Spontaneous
  Country: US (occurrence: US)
  Receive Date: 20130918
  Receipt Date: 20130918
  Transmission Date: 20140515
  Serious: No
  Sender: FDA-Public Use
  Company Number: US-PURDUE-USA-2011-0069742

PATIENT
  Age: 29 Year
  Sex: Female
  Weight: 62.13 kg

DRUGS (1)
  1. BUTRANS [Suspect]
     Indication: PAIN
     Dosage: 10 MCG/HR, DAILY
     Dates: start: 20110315, end: 20110525

REACTIONS (4)
  - Hypermetabolism [Unknown]
  - Inappropriate schedule of drug administration [Unknown]
  - Drug effect decreased [Recovered/Resolved]
  - Inadequate analgesia [Unknown]
